FAERS Safety Report 6196079-X (Version None)
Quarter: 2009Q2

REPORT INFORMATION
  Report Type: 
  Country: None (occurrence: None)
  Receive Date: 20090520
  Receipt Date: 20071002
  Transmission Date: 20091009
  Serious: Yes (Other)
  Sender: FDA-Public Use
  Company Number: US-ASTRAZENECA-2006UW22217

PATIENT
  Age: 15572 Day
  Sex: Female
  Weight: 144.2 kg

DRUGS (19)
  1. SEROQUEL [Suspect]
     Dosage: 25 TO 300 MG
     Route: 048
     Dates: start: 20010804
  2. IBUPROFEN [Concomitant]
     Route: 048
  3. DIOVAN HCT [Concomitant]
     Dosage: 25-160 MG
  4. DICLOFENAC POTASSIUM [Concomitant]
     Route: 048
  5. AMBIEN [Concomitant]
     Dosage: 5 MG TO 6.5 MG
     Route: 048
  6. MEPERIDINE HCL [Concomitant]
     Dosage: 50 TO 100 MG/ML
  7. PANTOPRAZOLE SODIUM [Concomitant]
     Dosage: 40 MG
  8. MULTI-VITAMIN [Concomitant]
  9. OMEPRAZOLE [Concomitant]
  10. CYCLOBENZAPRINE [Concomitant]
  11. PROPRANOLOL HYDROCHLORIDE [Concomitant]
  12. ERGOTAMINE [Concomitant]
  13. TOPAMAX [Concomitant]
  14. DEPAKOTE [Concomitant]
  15. ABILIFY [Concomitant]
  16. NEXIUM [Concomitant]
  17. AMITRIPTLINE HYDROCHLORIDE TAB [Concomitant]
  18. ZOLOFT [Concomitant]
     Dosage: 100 MG TO 200 MG, AT SLEEPING HOURS
  19. RISPERDAL [Concomitant]
     Dosage: 1 MG TO 3 MG

REACTIONS (36)
  - ABDOMINAL PAIN UPPER [None]
  - ACNE [None]
  - ANXIETY [None]
  - BACK PAIN [None]
  - BLOOD PRESSURE INCREASED [None]
  - BURNING SENSATION [None]
  - BURSITIS [None]
  - CARDIAC FAILURE CONGESTIVE [None]
  - CHRONIC OBSTRUCTIVE PULMONARY DISEASE [None]
  - CONJUNCTIVITIS ALLERGIC [None]
  - COUGH [None]
  - DIABETES MELLITUS [None]
  - DYSPHAGIA [None]
  - DYSPNOEA [None]
  - DYSPNOEA PAROXYSMAL NOCTURNAL [None]
  - GASTRIC ULCER [None]
  - GASTRITIS [None]
  - GASTROOESOPHAGEAL REFLUX DISEASE [None]
  - HEADACHE [None]
  - HYPOAESTHESIA [None]
  - LEFT ATRIAL DILATATION [None]
  - LIBIDO DECREASED [None]
  - MAJOR DEPRESSION [None]
  - MELANOCYTIC NAEVUS [None]
  - MIGRAINE [None]
  - MUSCLE STRAIN [None]
  - MYALGIA [None]
  - OEDEMA PERIPHERAL [None]
  - ORTHOPNOEA [None]
  - PAIN [None]
  - PAIN IN EXTREMITY [None]
  - RESPIRATORY TRACT INFECTION [None]
  - SACROILIITIS [None]
  - SCIATICA [None]
  - VIRAL INFECTION [None]
  - VULVOVAGINAL CANDIDIASIS [None]
